FAERS Safety Report 5326780-9 (Version None)
Quarter: 2007Q2

REPORT INFORMATION
  Report Type: 
  Country: None (occurrence: None)
  Receive Date: 20070516
  Receipt Date: 20070505
  Transmission Date: 20071010
  Serious: Yes (Other)
  Sender: FDA-Public Use
  Company Number: US-PFIZER INC-2007037032

PATIENT
  Sex: Male

DRUGS (1)
  1. VIAGRA [Suspect]
     Indication: LIBIDO INCREASED
     Dosage: TEXT:THREE AT ONCE

REACTIONS (3)
  - DRUG ADMINISTRATION ERROR [None]
  - ERECTION INCREASED [None]
  - PENILE PAIN [None]
